FAERS Safety Report 5114437-9 (Version None)
Quarter: 2006Q3

REPORT INFORMATION
  Report Type: 
  Country: None (occurrence: None)
  Receive Date: 20060731
  Receipt Date: 20060530
  Transmission Date: 20061208
  Serious: No
  Sender: FDA-Public Use
  Company Number: 2006PV014647

PATIENT
  Age: 69 Year
  Sex: Female
  Weight: 114.3065 kg

DRUGS (3)
  1. BYETTA [Suspect]
     Indication: DIABETES MELLITUS NON-INSULIN-DEPENDENT
     Dosage: 5 MCG;BID;SC
     Route: 058
     Dates: start: 20060526
  2. METFORMIN [Concomitant]
  3. GLIPIZIDE [Concomitant]

REACTIONS (4)
  - DRUG EFFECT DECREASED [None]
  - ERUCTATION [None]
  - NAUSEA [None]
  - REGURGITATION OF FOOD [None]
